FAERS Safety Report 22275966 (Version 1)
Quarter: 2023Q2

REPORT INFORMATION
  Report Type: Spontaneous
  Country: US (occurrence: None)
  Receive Date: 20230501
  Receipt Date: 20230501
  Transmission Date: 20230721
  Serious: Yes (Other)
  Sender: FDA-Public Use
  Company Number: None

PATIENT
  Age: 81 Year
  Sex: Female
  Weight: 52.2 kg

DRUGS (1)
  1. CARBIDOPA AND LEVODOPA [Suspect]
     Active Substance: CARBIDOPA\LEVODOPA
     Dosage: OTHER QUANTITY : 1 TABLET(S);?FREQUENCY : 3 TIMES A DAY;?
     Route: 048

REACTIONS (2)
  - Drug ineffective [None]
  - Suspected product quality issue [None]

NARRATIVE: CASE EVENT DATE: 20221124
